FAERS Safety Report 14459439 (Version 1)
Quarter: 2018Q1

REPORT INFORMATION
  Report Type: Spontaneous
  Country: US (occurrence: US)
  Receive Date: 20180129
  Receipt Date: 20180129
  Transmission Date: 20180509
  Serious: Yes (Other)
  Sender: FDA-Public Use
  Company Number: None

PATIENT
  Sex: Female
  Weight: 76.2 kg

DRUGS (1)
  1. SEROQUEL XR 400MG -GENERIC [Suspect]
     Active Substance: QUETIAPINE FUMARATE
     Indication: BIPOLAR DISORDER
     Dosage: 2 TABLETS, HS, PO
     Route: 048
     Dates: start: 201610, end: 201612

REACTIONS (3)
  - Product substitution issue [None]
  - Depression [None]
  - Suicidal ideation [None]
